FAERS Safety Report 9236504 (Version 1)
Quarter: 2013Q2

REPORT INFORMATION
  Report Type: Report from Study
  Country: US (occurrence: US)
  Receive Date: 20130417
  Receipt Date: 20130417
  Transmission Date: 20140414
  Serious: Yes (Hospitalization)
  Sender: FDA-Public Use
  Company Number: US-ROCHE-1117011

PATIENT
  Age: 55 Year
  Sex: Female
  Weight: 103.6 kg

DRUGS (12)
  1. PACLITAXEL [Suspect]
     Indication: BREAST CANCER
     Dosage: MOST RECENT DOSE PRIOR TO SAE: 23/AUG/2012
     Route: 042
     Dates: start: 20120322, end: 20120823
  2. PRILOSEC [Concomitant]
     Indication: GASTROOESOPHAGEAL REFLUX DISEASE
  3. TYLENOL [Concomitant]
  4. DIOVAN [Concomitant]
     Indication: HYPERTENSION
     Route: 065
     Dates: start: 20120523
  5. LOPRESSOR [Concomitant]
     Indication: HYPERTENSION
     Route: 065
     Dates: start: 20120619
  6. LASIX [Concomitant]
     Indication: OEDEMA
     Route: 065
     Dates: start: 20120621
  7. ENTOCORT [Concomitant]
     Indication: COLITIS ULCERATIVE
  8. BENADRYL [Concomitant]
     Route: 065
     Dates: start: 20120322, end: 20120823
  9. DECADRON [Concomitant]
     Route: 065
     Dates: start: 20120322, end: 20120823
  10. PEPCID [Concomitant]
     Route: 065
     Dates: start: 20120322, end: 20120323
  11. PLACEBO [Suspect]
     Indication: BREAST CANCER
     Dosage: MOST RECENT DOSE PRIOR TO SAE: 23/AUG/2012
     Route: 042
     Dates: start: 20120322, end: 20120823
  12. BEVACIZUMAB [Suspect]
     Indication: BREAST CANCER
     Dosage: MOST RECENT DOSE PRIOR TO SAE: 23/AUG/2012
     Route: 042
     Dates: start: 20120322, end: 20120823

REACTIONS (2)
  - Pulmonary embolism [Recovered/Resolved]
  - Haematoma [Recovered/Resolved]
